FAERS Safety Report 9513369 (Version 1)
Quarter: 2013Q1

REPORT INFORMATION
  Report Type: Spontaneous
  Country: US (occurrence: None)
  Receive Date: 20130305
  Receipt Date: 20130305
  Transmission Date: 20140127
  Serious: Yes (Hospitalization)
  Sender: FDA-Public Use
  Company Number: 163-21880-12101635

PATIENT
  Age: 51 Year
  Sex: Male

DRUGS (2)
  1. REVLIMID [Suspect]
     Indication: PLASMA CELL MYELOMA
     Route: 048
     Dates: start: 20100917
  2. PERCOCET ( OXYCOCET-UNKNOWN-UNKNOWN) ( UNKNOWN) [Concomitant]

REACTIONS (3)
  - Platelet count decreased [None]
  - Chest pain [None]
  - Plasma cell myeloma [None]
